FAERS Safety Report 8189273-X (Version None)
Quarter: 2012Q1

REPORT INFORMATION
  Report Type: 
  Country: None (occurrence: None)
  Receive Date: 20120307
  Receipt Date: 20120222
  Transmission Date: 20120608
  Serious: Yes (Hospitalization)
  Sender: FDA-Public Use
  Company Number: US-RANBAXY-2012US-52190

PATIENT
  Age: 24 Month
  Sex: Male

DRUGS (3)
  1. LORAZEPAM [Suspect]
     Indication: SEDATION
     Route: 065
  2. LORAZEPAM [Suspect]
     Indication: AGITATION
  3. FENTANYL [Suspect]
     Indication: SEDATION
     Dosage: UNK
     Route: 065

REACTIONS (1)
  - DELIRIUM [None]
